FAERS Safety Report 12880421 (Version 1)
Quarter: 2016Q4

REPORT INFORMATION
  Report Type: Spontaneous
  Country: US (occurrence: US)
  Receive Date: 20161025
  Receipt Date: 20161025
  Transmission Date: 20170207
  Serious: No
  Sender: FDA-Public Use
  Company Number: US-MYLANLABS-2016M1002287

PATIENT
  Sex: Female
  Weight: 92.63 kg

DRUGS (2)
  1. DIAZEPAM TABLETS USP [Suspect]
     Active Substance: DIAZEPAM
     Indication: OFF LABEL USE
  2. DIAZEPAM TABLETS USP [Suspect]
     Active Substance: DIAZEPAM
     Indication: INSOMNIA
     Dosage: 2 MG, PRN
     Route: 048
     Dates: start: 2015

REACTIONS (1)
  - Drug ineffective for unapproved indication [Not Recovered/Not Resolved]

NARRATIVE: CASE EVENT DATE: 2015
